FAERS Safety Report 7996383-6 (Version None)
Quarter: 2011Q4

REPORT INFORMATION
  Report Type: 
  Country: None (occurrence: None)
  Receive Date: 20111220
  Receipt Date: 20111215
  Transmission Date: 20120403
  Serious: Yes (Hospitalization, Disabling)
  Sender: FDA-Public Use
  Company Number: GB-MERCK-1112GBR00039

PATIENT
  Age: 83 Year
  Sex: Female

DRUGS (6)
  1. ITRACONAZOLE [Suspect]
     Indication: PANCYTOPENIA
     Route: 048
     Dates: start: 20111004, end: 20111030
  2. ZOCOR [Suspect]
     Route: 048
     Dates: end: 20111027
  3. MEROPENEM [Concomitant]
     Indication: SEPSIS
     Route: 042
     Dates: start: 20111001, end: 20111008
  4. FLUTICASONE PROPIONATE AND SALMETEROL XINAFOATE [Concomitant]
     Route: 055
  5. ACYCLOVIR [Concomitant]
     Indication: PROPHYLAXIS
     Route: 048
     Dates: start: 20111005, end: 20111030
  6. TRANEXAMIC ACID [Concomitant]
     Route: 048
     Dates: start: 20111009, end: 20111030

REACTIONS (2)
  - DRUG INTERACTION [None]
  - MYOPATHY [None]
